FAERS Safety Report 8516990-1 (Version None)
Quarter: 2012Q3

REPORT INFORMATION
  Report Type: 
  Country: None (occurrence: None)
  Receive Date: 20120718
  Receipt Date: 20120711
  Transmission Date: 20120928
  Serious: Yes (Hospitalization)
  Sender: FDA-Public Use
  Company Number: NZ-B.I. PHARMACEUTICALS,INC./RIDGEFIELD-2011-AU-02413AU

PATIENT
  Sex: Female
  Weight: 80 kg

DRUGS (3)
  1. PRADAXA [Suspect]
     Indication: ATRIAL FIBRILLATION
     Dosage: 300 MG
     Dates: start: 20110722, end: 20110822
  2. NEO-MERCAZOLE TAB [Concomitant]
     Dosage: 60 MG
     Dates: start: 20110722, end: 20110830
  3. PROPRANOLOL [Concomitant]
     Dosage: 80 MG
     Dates: start: 20110722, end: 20110830

REACTIONS (2)
  - ARTHRALGIA [None]
  - HAEMARTHROSIS [None]
